FAERS Safety Report 23712229 (Version 1)
Quarter: 2024Q2

REPORT INFORMATION
  Report Type: Spontaneous
  Country: US (occurrence: None)
  Receive Date: 20240404
  Receipt Date: 20240404
  Transmission Date: 20240715
  Serious: No
  Sender: FDA-Public Use
  Company Number: None

PATIENT
  Age: 30 Year
  Sex: Female
  Weight: 59.5 kg

DRUGS (8)
  1. FORTEO [Suspect]
     Active Substance: TERIPARATIDE
     Indication: Osteoporosis
     Dosage: 20 UG MICRGRM (S)  DAILY SUBCUTANEOUS?
     Route: 058
     Dates: start: 20240328
  2. CALCIUM [Concomitant]
     Active Substance: CALCIUM
  3. RELPAX [Concomitant]
     Active Substance: ELETRIPTAN HYDROBROMIDE
  4. LESSINA [Concomitant]
     Active Substance: ETHINYL ESTRADIOL\LEVONORGESTREL
  5. MAGNESIUM [Concomitant]
     Active Substance: MAGNESIUM
  6. NURTEC ODT [Concomitant]
     Active Substance: RIMEGEPANT SULFATE
  7. UBRELVY [Concomitant]
     Active Substance: UBROGEPANT
  8. VYVANSE [Concomitant]
     Active Substance: LISDEXAMFETAMINE DIMESYLATE

REACTIONS (1)
  - Hunger [None]

NARRATIVE: CASE EVENT DATE: 20240404
